FAERS Safety Report 15885212 (Version 3)
Quarter: 2019Q3

REPORT INFORMATION
  Report Type: Spontaneous
  Country: FR (occurrence: FR)
  Receive Date: 20190129
  Receipt Date: 20190717
  Transmission Date: 20191004
  Serious: Yes (Hospitalization)
  Sender: FDA-Public Use
  Company Number: FR-PROVELL PHARMACEUTICALS-2061875

PATIENT
  Age: 89 Year
  Sex: Female
  Weight: 54 kg

DRUGS (13)
  1. LASILIX [Suspect]
     Active Substance: FUROSEMIDE
     Route: 048
     Dates: start: 2016
  2. ANAFRANIL [Suspect]
     Active Substance: CLOMIPRAMINE HYDROCHLORIDE
     Route: 048
     Dates: start: 2016
  3. MYCOSTER [Suspect]
     Active Substance: CICLOPIROX\CICLOPIROX OLAMINE
     Route: 003
     Dates: start: 201808, end: 20181120
  4. MODOPAR [Suspect]
     Active Substance: BENSERAZIDE HYDROCHLORIDE\LEVODOPA
     Route: 048
     Dates: start: 2016, end: 20181122
  5. DOLIPRANE [Suspect]
     Active Substance: ACETAMINOPHEN
     Dates: start: 2016
  6. LYSANXIA [Suspect]
     Active Substance: PRAZEPAM
     Dates: start: 201808, end: 20181120
  7. VITAMINE B12 AGUETTANT [Suspect]
     Active Substance: CYANOCOBALAMIN
     Route: 048
     Dates: start: 201808, end: 20181120
  8. SULFARLEM [Suspect]
     Active Substance: ANETHOLTRITHION
     Route: 048
     Dates: start: 201808
  9. LERCAN [Suspect]
     Active Substance: LERCANIDIPINE
     Route: 048
     Dates: start: 2016
  10. EUTHYROX [Suspect]
     Active Substance: LEVOTHYROXINE SODIUM
     Indication: HYPOTHYROIDISM
     Route: 048
     Dates: start: 2016
  11. BISOCE [Suspect]
     Active Substance: BISOPROLOL
     Route: 048
     Dates: start: 2016
  12. STAGID [Suspect]
     Active Substance: METFORMIN PAMOATE
     Route: 048
     Dates: start: 201808
  13. ALPRAZOLAM. [Suspect]
     Active Substance: ALPRAZOLAM
     Route: 048
     Dates: start: 2016

REACTIONS (2)
  - General physical health deterioration [Not Recovered/Not Resolved]
  - Fall [Not Recovered/Not Resolved]

NARRATIVE: CASE EVENT DATE: 20181107
